FAERS Safety Report 23564752 (Version 1)
Quarter: 2024Q1

REPORT INFORMATION
  Report Type: Spontaneous
  Country: US (occurrence: US)
  Receive Date: 20240226
  Receipt Date: 20240226
  Transmission Date: 20240409
  Serious: No
  Sender: FDA-Public Use
  Company Number: US-BIOGEN-2020BI00846589

PATIENT
  Sex: Female

DRUGS (5)
  1. TECFIDERA [Suspect]
     Active Substance: DIMETHYL FUMARATE
     Indication: Multiple sclerosis
     Dosage: ON TRIAL OF TECFIDERA
     Route: 050
  2. TECFIDERA [Suspect]
     Active Substance: DIMETHYL FUMARATE
     Route: 050
     Dates: start: 20200312, end: 20231107
  3. CYCLOBENZAPRINE [Concomitant]
     Active Substance: CYCLOBENZAPRINE
     Route: 050
  4. METOPROLOL [Concomitant]
     Active Substance: METOPROLOL
     Route: 050
  5. PHENTERMINE [Concomitant]
     Active Substance: PHENTERMINE
     Route: 050

REACTIONS (7)
  - Product dose omission issue [Unknown]
  - Weight increased [Not Recovered/Not Resolved]
  - Hepatic steatosis [Not Recovered/Not Resolved]
  - Abdominal discomfort [Recovered/Resolved]
  - Flushing [Unknown]
  - Nausea [Unknown]
  - Abdominal pain upper [Recovered/Resolved]
